FAERS Safety Report 20917535 (Version 2)
Quarter: 2022Q3

REPORT INFORMATION
  Report Type: Spontaneous
  Country: US (occurrence: US)
  Receive Date: 20220606
  Receipt Date: 20220827
  Transmission Date: 20221026
  Serious: Yes (Disabling, Other)
  Sender: FDA-Public Use
  Company Number: US-SA-SAC20220601001843

PATIENT
  Age: 43 Year
  Sex: Female

DRUGS (1)
  1. ZANTAC [Suspect]
     Active Substance: RANITIDINE HYDROCHLORIDE
     Dosage: 150 MG, QD
     Route: 048
     Dates: start: 201101, end: 201701

REACTIONS (5)
  - Breast cancer stage II [Unknown]
  - Disability [Unknown]
  - Pain [Unknown]
  - Anhedonia [Unknown]
  - Anxiety [Unknown]

NARRATIVE: CASE EVENT DATE: 20150101
